FAERS Safety Report 26098135 (Version 1)
Quarter: 2025Q4

REPORT INFORMATION
  Report Type: Spontaneous
  Country: JP (occurrence: JP)
  Receive Date: 20251127
  Receipt Date: 20251127
  Transmission Date: 20260118
  Serious: Yes (Other)
  Sender: SANDOZ
  Company Number: JP-SANDOZ-SDZ2025JP089268

PATIENT
  Age: 18 Year
  Sex: Female

DRUGS (6)
  1. IXIFI [Suspect]
     Active Substance: INFLIXIMAB-QBTX
     Indication: Psoriatic arthropathy
     Dosage: UNK
     Route: 065
  2. IXIFI [Suspect]
     Active Substance: INFLIXIMAB-QBTX
     Indication: Takayasu^s arteritis
  3. METHOTREXATE SODIUM [Suspect]
     Active Substance: METHOTREXATE SODIUM
     Indication: Psoriatic arthropathy
     Dosage: UNK
     Route: 048
  4. METHOTREXATE SODIUM [Suspect]
     Active Substance: METHOTREXATE SODIUM
     Indication: Takayasu^s arteritis
  5. PREDNISOLONE [Suspect]
     Active Substance: PREDNISOLONE
     Indication: Psoriatic arthropathy
     Dosage: UNK
     Route: 065
  6. PREDNISOLONE [Suspect]
     Active Substance: PREDNISOLONE
     Indication: Takayasu^s arteritis

REACTIONS (2)
  - Condition aggravated [Unknown]
  - Back pain [Unknown]
